FAERS Safety Report 4661204-6 (Version None)
Quarter: 2005Q2

REPORT INFORMATION
  Report Type: 
  Country: None (occurrence: None)
  Receive Date: 20050513
  Receipt Date: 20050502
  Transmission Date: 20051028
  Serious: Yes (Hospitalization)
  Sender: FDA-Public Use
  Company Number: BE-BRISTOL-MYERS SQUIBB COMPANY-12960118

PATIENT
  Age: 67 Year
  Sex: Male

DRUGS (1)
  1. MITOMYCIN-C BULK POWDER [Suspect]
     Route: 043
     Dates: start: 20050111, end: 20050111

REACTIONS (1)
  - HAEMORRHAGE [None]
